FAERS Safety Report 8524022-4 (Version None)
Quarter: 2012Q3

REPORT INFORMATION
  Report Type: 
  Country: None (occurrence: None)
  Receive Date: 20120720
  Receipt Date: 20120713
  Transmission Date: 20120928
  Serious: Yes (Other)
  Sender: FDA-Public Use
  Company Number: US-UCBSA-061763

PATIENT
  Sex: Female

DRUGS (2)
  1. VIMPAT [Suspect]
     Indication: EPILEPSY
     Dosage: DOSE: 400 MG
  2. LAMICTAL [Concomitant]
     Indication: EPILEPSY

REACTIONS (4)
  - MATERNAL DRUGS AFFECTING FOETUS [None]
  - ABORTION SPONTANEOUS [None]
  - FOETAL DEATH [None]
  - PREGNANCY [None]
